FAERS Safety Report 19436352 (Version 1)
Quarter: 2021Q2

REPORT INFORMATION
  Report Type: Other
  Country: PL (occurrence: PL)
  Receive Date: 20210618
  Receipt Date: 20210618
  Transmission Date: 20210717
  Serious: Yes (Death, Hospitalization, Other)
  Sender: FDA-Public Use
  Company Number: PL-MACLEODS PHARMA UK LTD-MAC2021031530

PATIENT

DRUGS (18)
  1. OMEPRAZOLE 20 MG [Suspect]
     Active Substance: OMEPRAZOLE
     Indication: PRODUCT USED FOR UNKNOWN INDICATION
     Dosage: 20 MILLIGRAM, QD, TABLET ON EMPTY STOMACH
     Route: 065
  2. BISOPROLOL 1.25 MG TABLETS [Suspect]
     Active Substance: BISOPROLOL
     Indication: PRODUCT USED FOR UNKNOWN INDICATION
     Dosage: 1.25 MILLIGRAM, QD, IN THE MORNING
     Route: 065
  3. ESOMEPRAZOLE. [Suspect]
     Active Substance: ESOMEPRAZOLE MAGNESIUM
     Dosage: 40 MILLIGRAM, QD, (1X1 TABLET IN THE MORNING ON THE EMPTY STOMACH)
     Route: 065
  4. BISOPROLOL 1.25 MG TABLETS [Suspect]
     Active Substance: BISOPROLOL
     Dosage: 1.875 MILLIGRAM, QD (1X1.5 TABLET IN THE MORNING)
     Route: 065
  5. ENTRESTO [Suspect]
     Active Substance: SACUBITRIL\VALSARTAN
     Indication: PRODUCT USED FOR UNKNOWN INDICATION
     Dosage: UNK, 24/26 MG, BID
     Route: 065
  6. ALLOPURINOL. [Suspect]
     Active Substance: ALLOPURINOL
     Indication: PRODUCT USED FOR UNKNOWN INDICATION
     Dosage: 300 MILLIGRAM, QD
     Route: 065
  7. AMOXICILLIN. [Suspect]
     Active Substance: AMOXICILLIN
     Indication: PRODUCT USED FOR UNKNOWN INDICATION
     Dosage: 1 GRAM, BID
     Route: 065
  8. RAMIPRIL 2.5 MG TABLET [Suspect]
     Active Substance: RAMIPRIL
     Dosage: 2.5 MILLIGRAM, BID, (1 TABLET (2.5MG) IN THE MORNING AND 1 TABLET IN THE EVENING)
     Route: 065
  9. ESOMEPRAZOLE. [Suspect]
     Active Substance: ESOMEPRAZOLE MAGNESIUM
     Indication: PRODUCT USED FOR UNKNOWN INDICATION
     Dosage: 40 MILLIGRAM, BID (TABLET)
     Route: 065
  10. IPP [PANTOPRAZOLE SODIUM] [Suspect]
     Active Substance: PANTOPRAZOLE SODIUM
     Dosage: 20 MILLIGRAM, QD, IN THE MORNING
     Route: 065
  11. ASPIRIN. [Suspect]
     Active Substance: ASPIRIN
     Indication: PRODUCT USED FOR UNKNOWN INDICATION
     Dosage: 75 MILLIGRAM, ACETYLSALICYLIC ACID
     Route: 065
  12. ALLOPURINOL. [Suspect]
     Active Substance: ALLOPURINOL
     Dosage: 100 MILLIGRAM, QD,IN THE MORNING
     Route: 065
  13. TORSEMED [Suspect]
     Active Substance: TORSEMIDE
     Indication: PRODUCT USED FOR UNKNOWN INDICATION
     Dosage: 10 MILLIGRAM, QD, IN THE MORNING
     Route: 065
  14. IPP [PANTOPRAZOLE SODIUM] [Suspect]
     Active Substance: PANTOPRAZOLE SODIUM
     Indication: PRODUCT USED FOR UNKNOWN INDICATION
     Dosage: 10 MILLIGRAM, QD, IN THE MORNING
     Route: 065
  15. CLOPIDOGREL [Suspect]
     Active Substance: CLOPIDOGREL BISULFATE
     Indication: PRODUCT USED FOR UNKNOWN INDICATION
     Dosage: UNK UNK, QD
     Route: 065
     Dates: start: 20191127
  16. LEVOFLOXACIN. [Suspect]
     Active Substance: LEVOFLOXACIN
     Indication: INFECTIVE EXACERBATION OF CHRONIC OBSTRUCTIVE AIRWAYS DISEASE
     Dosage: UNK
     Route: 042
  17. ATORVASTATIN 10 MG [Suspect]
     Active Substance: ATORVASTATIN
     Indication: PRODUCT USED FOR UNKNOWN INDICATION
     Dosage: 10 MILLIGRAM, QD, IN THE EVENING
     Route: 065
  18. RAMIPRIL 2.5 MG TABLET [Suspect]
     Active Substance: RAMIPRIL
     Indication: PRODUCT USED FOR UNKNOWN INDICATION
     Dosage: UNK, BID, 1 TABLET (2.5MG) IN THE MORNING AND ? TABLET IN THE EVENING
     Route: 065

REACTIONS (46)
  - Cardiac failure [Unknown]
  - Eye injury [Unknown]
  - Nicotine dependence [Unknown]
  - Atrial fibrillation [Unknown]
  - Ventricular tachycardia [Unknown]
  - Productive cough [Unknown]
  - Respiratory disorder [Unknown]
  - Gastritis erosive [Unknown]
  - Heart rate irregular [Unknown]
  - Type 2 diabetes mellitus [Unknown]
  - Exercise tolerance decreased [Unknown]
  - Systolic dysfunction [Unknown]
  - Infective exacerbation of chronic obstructive airways disease [Unknown]
  - Coronary artery disease [Unknown]
  - Chest discomfort [Unknown]
  - Pulmonary hypertension [Unknown]
  - Normocytic anaemia [Unknown]
  - Gastritis [Unknown]
  - Inferior vena cava dilatation [Unknown]
  - Chronic kidney disease [Unknown]
  - Duodenitis [Unknown]
  - Oedema peripheral [Recovered/Resolved]
  - Mitral valve incompetence [Unknown]
  - Helicobacter test positive [Unknown]
  - Wrong technique in product usage process [Unknown]
  - COVID-19 pneumonia [Fatal]
  - Respiratory tract infection [Unknown]
  - Cataract [Unknown]
  - Cardiac aneurysm [Unknown]
  - Dyspnoea [Unknown]
  - Asthenia [Unknown]
  - Degenerative mitral valve disease [Unknown]
  - Occult blood positive [Unknown]
  - Ventricular arrhythmia [Unknown]
  - Diarrhoea [Unknown]
  - Ventricular enlargement [Unknown]
  - Blood glucose increased [Unknown]
  - Skin ulcer [Recovered/Resolved]
  - Peripheral venous disease [Recovered/Resolved]
  - Ventricular hypokinesia [Unknown]
  - Angina pectoris [Recovered/Resolved]
  - Coronary artery stenosis [Unknown]
  - Hiatus hernia [Unknown]
  - Pulmonary vascular disorder [Unknown]
  - Cardiac disorder [Unknown]
  - Blood pressure systolic decreased [Unknown]

NARRATIVE: CASE EVENT DATE: 201806
